FAERS Safety Report 19452848 (Version 1)
Quarter: 2021Q2

REPORT INFORMATION
  Report Type: Spontaneous
  Country: US (occurrence: US)
  Receive Date: 20210623
  Receipt Date: 20210623
  Transmission Date: 20210717
  Serious: Yes (Other)
  Sender: FDA-Public Use
  Company Number: US-MACLEODS PHARMACEUTICALS US LTD-MAC2021031610

PATIENT

DRUGS (10)
  1. FLUOXETINE [Suspect]
     Active Substance: FLUOXETINE HYDROCHLORIDE
     Indication: BIPOLAR DISORDER
     Dosage: 40 MILLIGRAM, QD, START DATE: DEC 2016
     Route: 065
  2. PRAMIPEXOLE. [Concomitant]
     Active Substance: PRAMIPEXOLE
     Indication: BIPOLAR DISORDER
     Dosage: 375 MICROGRAM, QD
     Route: 065
     Dates: end: 201707
  3. LAMOTRIGINE. [Concomitant]
     Active Substance: LAMOTRIGINE
     Dosage: 200 MICROGRAM, QD, PM
     Route: 065
     Dates: start: 201803
  4. OLANZAPINE. [Suspect]
     Active Substance: OLANZAPINE
     Indication: BIPOLAR I DISORDER
     Dosage: UNK
     Route: 065
     Dates: start: 201612, end: 201701
  5. GABAPENTIN. [Suspect]
     Active Substance: GABAPENTIN
     Indication: BIPOLAR DISORDER
     Dosage: 3200 MILLIGRAM, QD, BEDTIME, STOP DATE: NOV 2016
     Route: 065
  6. GABAPENTIN. [Suspect]
     Active Substance: GABAPENTIN
     Dosage: 1600 MILLIGRAM, QD, BEDTIME, STOP DATE: AUG?2018
     Route: 065
  7. GABAPENTIN. [Suspect]
     Active Substance: GABAPENTIN
     Dosage: 800 MILLIGRAM, QD, MORNING, STOP DATE: JUL 2018
     Route: 065
  8. LAMOTRIGINE. [Concomitant]
     Active Substance: LAMOTRIGINE
     Dosage: 100 MICROGRAM, QD, AM
     Route: 065
     Dates: start: 201803
  9. QUETIAPINE. [Suspect]
     Active Substance: QUETIAPINE
     Indication: BIPOLAR I DISORDER
     Dosage: UNK
     Route: 065
     Dates: start: 201612, end: 201701
  10. LAMOTRIGINE. [Concomitant]
     Active Substance: LAMOTRIGINE
     Indication: BIPOLAR DISORDER
     Dosage: 200 MICROGRAM, QD
     Route: 065
     Dates: end: 201802

REACTIONS (6)
  - Irritability [Unknown]
  - Affective disorder [Unknown]
  - Restless legs syndrome [Recovering/Resolving]
  - Condition aggravated [Recovering/Resolving]
  - Intentional product misuse [Recovering/Resolving]
  - Self-medication [Recovering/Resolving]

NARRATIVE: CASE EVENT DATE: 2017
